FAERS Safety Report 6584159-6 (Version None)
Quarter: 2010Q1

REPORT INFORMATION
  Report Type: 
  Country: None (occurrence: None)
  Receive Date: 20100213
  Receipt Date: 20100213
  Transmission Date: 20100710
  Serious: Yes (Hospitalization)
  Sender: FDA-Public Use
  Company Number: None

PATIENT
  Age: 86 Year
  Sex: Female
  Weight: 52 kg

DRUGS (10)
  1. WARFARIN SODIUM [Suspect]
     Indication: ANTICOAGULANT THERAPY
     Dosage: 2 MG 6 DAYS/WEEK PO
     Route: 048
  2. WARFARIN SODIUM [Suspect]
     Indication: ATRIAL FIBRILLATION
     Dosage: 2 MG 6 DAYS/WEEK PO
     Route: 048
  3. ENOXAPARIN SODIUM [Suspect]
     Indication: THROMBOSIS PROPHYLAXIS
     Dosage: 40 MG DAILY SQ
     Route: 058
  4. METOPROLOL TARTRATE [Concomitant]
  5. SIMVASTATIN [Concomitant]
  6. GLIMEPIRIDE [Concomitant]
  7. LOSARTAN POTASSIUM [Concomitant]
  8. CLONIDINE [Concomitant]
  9. LATANOPROST [Concomitant]
  10. BRIMONIDINE/TIMOLOL [Concomitant]

REACTIONS (9)
  - BRAIN OEDEMA [None]
  - DIZZINESS [None]
  - GAIT DISTURBANCE [None]
  - HAEMORRHAGIC STROKE [None]
  - INTRACRANIAL PRESSURE INCREASED [None]
  - ISCHAEMIC STROKE [None]
  - NAUSEA [None]
  - NYSTAGMUS [None]
  - VOMITING [None]
